FAERS Safety Report 23888393 (Version 1)
Quarter: 2024Q2

REPORT INFORMATION
  Report Type: Spontaneous
  Country: PT (occurrence: PT)
  Receive Date: 20240523
  Receipt Date: 20240523
  Transmission Date: 20240716
  Serious: Yes (Hospitalization)
  Sender: FDA-Public Use
  Company Number: PT-MYLANLABS-2024M1046339

PATIENT
  Age: 44 Year
  Sex: Male

DRUGS (2)
  1. ROPIVACAINE [Suspect]
     Active Substance: ROPIVACAINE
     Indication: Epidural anaesthesia
     Dosage: 7 MILLILITER (BOLUS OF 0.2% ROPIVACAINE 7ML)
     Route: 065
  2. ROPIVACAINE [Suspect]
     Active Substance: ROPIVACAINE
     Indication: Epidural anaesthesia
     Dosage: 5 MILLILITER, QH (EPIDURAL INFUSION OF 0.15% ROPIVACAINE 5?ML/H)
     Route: 008

REACTIONS (1)
  - Priapism [Recovered/Resolved]
